FAERS Safety Report 25245607 (Version 1)
Quarter: 2025Q2

REPORT INFORMATION
  Report Type: Spontaneous
  Country: US (occurrence: None)
  Receive Date: 20250427
  Receipt Date: 20250427
  Transmission Date: 20250717
  Serious: Yes (unspecified)
  Sender: FDA-CTU
  Company Number: None

PATIENT
  Age: 19 Year
  Sex: Female
  Weight: 57.6 kg

DRUGS (2)
  1. CLINDAMYCIN PALMITATE HYDROCHLORIDE [Suspect]
     Active Substance: CLINDAMYCIN PALMITATE HYDROCHLORIDE
     Indication: Jaw fracture
     Dosage: 1 TEASPOON(S)  EVERY 6 HOURS ORAL ?
     Route: 048
  2. CLINDAMYCIN PALMITATE HYDROCHLORIDE [Suspect]
     Active Substance: CLINDAMYCIN PALMITATE HYDROCHLORIDE
     Indication: Surgery

REACTIONS (6)
  - Rash [None]
  - Erythema [None]
  - Pruritus [None]
  - Swelling face [None]
  - Lip swelling [None]
  - Therapy cessation [None]

NARRATIVE: CASE EVENT DATE: 20250427
